FAERS Safety Report 5082965-0 (Version None)
Quarter: 2006Q3

REPORT INFORMATION
  Report Type: 
  Country: None (occurrence: None)
  Receive Date: 20060814
  Receipt Date: 20060727
  Transmission Date: 20061208
  Serious: Yes (Death, Hospitalization)
  Sender: FDA-Public Use
  Company Number: 228454

PATIENT
  Age: 73 Year
  Sex: Male

DRUGS (11)
  1. AVASTIN [Suspect]
     Indication: COLORECTAL CANCER METASTATIC
     Dosage: 600 MG, Q3W, INTRAVENOUS
     Route: 042
     Dates: start: 20051019
  2. CAPECITABINE (CAPECITABINE) [Suspect]
     Indication: COLORECTAL CANCER METASTATIC
     Dosage: 1500 MG, BID, ORAL
     Route: 048
     Dates: start: 20051019, end: 20051219
  3. OXALIPLATIN (OXALIPLATIN) [Suspect]
     Indication: COLORECTAL CANCER METASTATIC
     Dosage: 200 MG, Q3W, INTRAVENOUS
     Route: 042
     Dates: start: 20051019
  4. ERBITUX [Suspect]
     Indication: COLORECTAL CANCER METASTATIC
     Dosage: SEE IMAGE
     Route: 042
     Dates: start: 20051019
  5. LACTULOSE [Concomitant]
  6. MAGNESIUM HYDROXIDE TAB [Concomitant]
  7. ZOFRAN [Concomitant]
  8. PANTOPRAZOLE SODIUM [Concomitant]
  9. LOPERAMIDE [Concomitant]
  10. PRIMPERAN ELIXIR [Concomitant]
  11. CONCOMITANT DRUG (GENERIC COMPONENT(S)) [Concomitant]

REACTIONS (7)
  - DEHYDRATION [None]
  - DIARRHOEA [None]
  - MUCOSAL INFLAMMATION [None]
  - NAUSEA [None]
  - ORAL INTAKE REDUCED [None]
  - SUDDEN DEATH [None]
  - VOMITING [None]
